FAERS Safety Report 5280085-3 (Version None)
Quarter: 2007Q1

REPORT INFORMATION
  Report Type: 
  Country: None (occurrence: None)
  Receive Date: 20070329
  Receipt Date: 20070314
  Transmission Date: 20070707
  Serious: Yes (Hospitalization)
  Sender: FDA-Public Use
  Company Number: KR-BAYER-200711342GDS

PATIENT
  Sex: Male
  Weight: 66 kg

DRUGS (4)
  1. SORAFENIB [Suspect]
     Indication: RENAL CELL CARCINOMA STAGE UNSPECIFIED
     Dosage: TOTAL DAILY DOSE: 400 MG
     Route: 048
     Dates: start: 20061208
  2. SORAFENIB [Suspect]
     Dosage: TOTAL DAILY DOSE: 800 MG
     Route: 048
     Dates: start: 20061130, end: 20061207
  3. ACETAMINOPHEN [Concomitant]
     Indication: PAIN PROPHYLAXIS
     Route: 048
     Dates: start: 20070222, end: 20070224
  4. SURFOLASE [Concomitant]
     Indication: DRUG USE FOR UNKNOWN INDICATION
     Route: 048
     Dates: start: 20070222, end: 20070224

REACTIONS (3)
  - DECREASED APPETITE [None]
  - FATIGUE [None]
  - HYPERHIDROSIS [None]
